FAERS Safety Report 4833073-2 (Version None)
Quarter: 2005Q4

REPORT INFORMATION
  Report Type: 
  Country: None (occurrence: None)
  Receive Date: 20051121
  Receipt Date: 20050923
  Transmission Date: 20060501
  Serious: Yes (Disabling)
  Sender: FDA-Public Use
  Company Number: US-ROCHE-419010

PATIENT
  Age: 64 Year
  Sex: Male
  Weight: 83.9 kg

DRUGS (3)
  1. KLONOPIN [Suspect]
     Indication: DRUG USE FOR UNKNOWN INDICATION
     Route: 065
     Dates: start: 19900101
  2. VALIUM [Concomitant]
     Indication: SEDATION
     Dates: start: 20050615, end: 20050615
  3. FENERGAN [Concomitant]
     Indication: SEDATION
     Dates: start: 20050615, end: 20050615

REACTIONS (5)
  - BLEPHAROSPASM [None]
  - CONTACT LENS INTOLERANCE [None]
  - DRY EYE [None]
  - EYE PAIN [None]
  - LACRIMATION INCREASED [None]
